FAERS Safety Report 7536776-4 (Version None)
Quarter: 2011Q2

REPORT INFORMATION
  Report Type: 
  Country: None (occurrence: None)
  Receive Date: 20110603
  Receipt Date: 20110519
  Transmission Date: 20111010
  Serious: Yes (Death, Hospitalization)
  Sender: FDA-Public Use
  Company Number: 2011MA005261

PATIENT
  Age: 50 Year
  Sex: Male

DRUGS (5)
  1. CISPLATIN [Concomitant]
  2. CARMUSTINE [Concomitant]
  3. DEXAMETHASONE [Concomitant]
  4. PHENYTOIN [Suspect]
     Indication: STATUS EPILEPTICUS
     Dosage: 1 GM; 1X; IV
     Route: 042
     Dates: start: 20060101, end: 20061201
  5. TEMOZOLOMIDE [Concomitant]

REACTIONS (11)
  - GLIOBLASTOMA MULTIFORME [None]
  - EPILEPSY [None]
  - HAEMORRHAGE [None]
  - SENSORIMOTOR DISORDER [None]
  - OPHTHALMOPLEGIA [None]
  - VOMITING [None]
  - HEMIANOPIA [None]
  - NYSTAGMUS [None]
  - DIPLOPIA [None]
  - HEADACHE [None]
  - DRUG INTERACTION [None]
